FAERS Safety Report 25764423 (Version 1)
Quarter: 2025Q3

REPORT INFORMATION
  Report Type: Spontaneous
  Country: US (occurrence: US)
  Receive Date: 20250905
  Receipt Date: 20250905
  Transmission Date: 20251021
  Serious: No
  Sender: DOMPE FARMACEUTICI
  Company Number: US-FARMAPROD-202502-0456

PATIENT
  Sex: Female

DRUGS (12)
  1. OXERVATE [Suspect]
     Active Substance: CENEGERMIN-BKBJ
     Indication: Neurotrophic keratopathy
     Route: 047
     Dates: start: 20250208
  2. OXERVATE [Suspect]
     Active Substance: CENEGERMIN-BKBJ
  3. LUMIFY [Concomitant]
     Active Substance: BRIMONIDINE TARTRATE
  4. BERBERINE [Concomitant]
     Active Substance: BERBERINE
  5. TRESIBA [Concomitant]
     Active Substance: INSULIN DEGLUDEC
  6. VITAMIN C [Concomitant]
     Active Substance: ASCORBIC ACID
  7. SYNTHROID [Concomitant]
     Active Substance: LEVOTHYROXINE SODIUM
  8. VITAMIN B12 [Concomitant]
     Active Substance: CYANOCOBALAMIN
  9. FISH OIL [Concomitant]
     Active Substance: FISH OIL
  10. VITAMINS [Concomitant]
     Active Substance: VITAMINS
  11. LISINOPRIL [Concomitant]
     Active Substance: LISINOPRIL
  12. PRAVASTATIN SODIUM [Concomitant]
     Active Substance: PRAVASTATIN SODIUM

REACTIONS (6)
  - Headache [Unknown]
  - Foreign body sensation in eyes [Unknown]
  - Photophobia [Unknown]
  - Periorbital pain [Unknown]
  - Eye irritation [Unknown]
  - Eye pain [Unknown]
